FAERS Safety Report 4780373-0 (Version None)
Quarter: 2005Q3

REPORT INFORMATION
  Report Type: 
  Country: None (occurrence: None)
  Receive Date: 20050926
  Receipt Date: 20050913
  Transmission Date: 20060218
  Serious: Yes (Hospitalization)
  Sender: FDA-Public Use
  Company Number: 2002058834

PATIENT
  Age: 57 Year
  Sex: Male
  Weight: 134.7183 kg

DRUGS (10)
  1. LIPITOR [Suspect]
     Indication: HYPERLIPIDAEMIA
     Dosage: 20 MG (DAILY), ORAL
     Route: 048
     Dates: start: 20011101
  2. PREDNISONE [Concomitant]
  3. ZOLOFT [Concomitant]
  4. COZAAR [Concomitant]
  5. VENTOLIN [Concomitant]
  6. FLOVENT [Concomitant]
  7. ATROVENT [Concomitant]
  8. FUCIDINE CAP [Concomitant]
  9. TYLENOL (PARACETAMOL) [Concomitant]
  10. NEORAL [Concomitant]

REACTIONS (1)
  - COLOSTOMY INFECTION [None]
